FAERS Safety Report 9245410 (Version 1)
Quarter: 2013Q2

REPORT INFORMATION
  Report Type: Spontaneous
  Country: US (occurrence: US)
  Receive Date: 20130422
  Receipt Date: 20130422
  Transmission Date: 20140414
  Serious: Yes (Other)
  Sender: FDA-Public Use
  Company Number: US-SANOFI-AVENTIS-2013SA040607

PATIENT
  Age: 60 Year
  Sex: Male

DRUGS (1)
  1. LANTUS [Suspect]
     Indication: TYPE 2 DIABETES MELLITUS
     Dosage: TAKEN FROM 2003 OR 2004 DOSE:95 UNIT(S)
     Route: 051

REACTIONS (4)
  - Cerebrovascular accident [Unknown]
  - Disability [Unknown]
  - Arthropathy [Unknown]
  - Gait disturbance [Unknown]
